FAERS Safety Report 11684943 (Version 1)
Quarter: 2015Q4

REPORT INFORMATION
  Report Type: Spontaneous
  Country: US (occurrence: US)
  Receive Date: 20151030
  Receipt Date: 20151030
  Transmission Date: 20160304
  Serious: Yes (Hospitalization)
  Sender: FDA-Public Use
  Company Number: US-ROCHE-1651666

PATIENT
  Age: 67 Year
  Sex: Female

DRUGS (1)
  1. ESBRIET [Suspect]
     Active Substance: PIRFENIDONE
     Indication: ILL-DEFINED DISORDER
     Route: 048
     Dates: start: 20150810

REACTIONS (5)
  - Urinary tract infection [Unknown]
  - Dehydration [Unknown]
  - Fatigue [Unknown]
  - Headache [Unknown]
  - Diarrhoea [Unknown]

NARRATIVE: CASE EVENT DATE: 20151014
